FAERS Safety Report 6158857-2 (Version None)
Quarter: 2009Q2

REPORT INFORMATION
  Report Type: 
  Country: None (occurrence: None)
  Receive Date: 20090417
  Receipt Date: 20090409
  Transmission Date: 20091009
  Serious: Yes (Other)
  Sender: FDA-Public Use
  Company Number: PHHY2009GB07202

PATIENT

DRUGS (1)
  1. SANDOSTATIN [Suspect]
     Indication: FISTULA DISCHARGE
     Dosage: 50 UG, TID

REACTIONS (6)
  - ABDOMINAL OPERATION [None]
  - FISTULA DISCHARGE [None]
  - INJECTION SITE PAIN [None]
  - PAIN [None]
  - PARENTERAL NUTRITION [None]
  - WEIGHT DECREASED [None]
